APPROVED DRUG PRODUCT: TRELSTAR
Active Ingredient: TRIPTORELIN PAMOATE
Strength: EQ 3.75MG BASE/VIAL
Dosage Form/Route: INJECTABLE;INTRAMUSCULAR
Application: N020715 | Product #001
Applicant: VERITY PHARMACEUTICALS INC
Approved: Jun 15, 2000 | RLD: Yes | RS: Yes | Type: RX